FAERS Safety Report 6181507-6 (Version None)
Quarter: 2009Q2

REPORT INFORMATION
  Report Type: 
  Country: None (occurrence: None)
  Receive Date: 20090506
  Receipt Date: 20090422
  Transmission Date: 20091009
  Serious: Yes (Other)
  Sender: FDA-Public Use
  Company Number: CA-GENENTECH-282228

PATIENT
  Sex: Male

DRUGS (2)
  1. LUCENTIS [Suspect]
     Indication: MACULAR DEGENERATION
     Dosage: UNK
     Route: 031
     Dates: start: 20090407
  2. ERYTHROMYCIN [Concomitant]
     Indication: PREMEDICATION

REACTIONS (3)
  - CORNEAL EPITHELIUM DEFECT [None]
  - CORNEAL EROSION [None]
  - EYE PAIN [None]
